FAERS Safety Report 4585928-4 (Version None)
Quarter: 2005Q1

REPORT INFORMATION
  Report Type: 
  Country: None (occurrence: None)
  Receive Date: 20050217
  Receipt Date: 20050209
  Transmission Date: 20050727
  Serious: Yes (Other)
  Sender: FDA-Public Use
  Company Number: US-JNJFOC-20050202542

PATIENT
  Sex: Male

DRUGS (3)
  1. REOPRO [Suspect]
     Route: 042
  2. ASPIRIN [Concomitant]
  3. PLAVIX [Concomitant]

REACTIONS (3)
  - BLOOD FIBRINOGEN DECREASED [None]
  - HAEMOGLOBIN DECREASED [None]
  - PLATELET COUNT DECREASED [None]
